FAERS Safety Report 15956144 (Version 1)
Quarter: 2019Q1

REPORT INFORMATION
  Report Type: Spontaneous
  Country: JP (occurrence: JP)
  Receive Date: 20190213
  Receipt Date: 20190213
  Transmission Date: 20190417
  Serious: Yes (Hospitalization, Other)
  Sender: FDA-Public Use
  Company Number: JP-PFIZER INC-2019062146

PATIENT
  Age: 75 Year
  Sex: Female
  Weight: 52 kg

DRUGS (11)
  1. CAMPTO [Suspect]
     Active Substance: IRINOTECAN
     Indication: COLON CANCER
     Dosage: 130 MG, 1X/DAY (88.8 MG/M2)
     Route: 041
     Dates: start: 20181212, end: 20181212
  2. AMLODIPINE [Concomitant]
     Active Substance: AMLODIPINE BESYLATE
     Dosage: UNK
     Route: 048
  3. AVASTIN [Suspect]
     Active Substance: BEVACIZUMAB
     Indication: COLON CANCER
     Dosage: 250 MG, 1X/DAY
     Route: 041
     Dates: start: 20181212, end: 20181212
  4. METHYCOBAL [Concomitant]
     Active Substance: METHYLCOBALAMIN
     Dosage: UNK
  5. CLEANAL [Concomitant]
     Active Substance: FUDOSTEINE
     Dosage: UNK
     Route: 048
  6. GOSHAJINKIGAN [Concomitant]
     Active Substance: HERBALS
     Dosage: UNK
  7. CAMPTO [Suspect]
     Active Substance: IRINOTECAN
     Dosage: 130 MG, 1X/DAY
     Route: 041
     Dates: start: 20190109, end: 20190109
  8. TS-1 [Suspect]
     Active Substance: GIMERACIL\OTERACIL\TEGAFUR
     Indication: COLON CANCER
     Dosage: 40 MG, 2X/DAY (ONCE IN 12HOURS)
     Route: 048
     Dates: start: 20181212, end: 20181225
  9. TS-1 [Suspect]
     Active Substance: GIMERACIL\OTERACIL\TEGAFUR
     Dosage: 40 MG, 2X/DAY (ONCE IN 12HOURS)
     Route: 048
     Dates: start: 20190109, end: 20190122
  10. AVASTIN [Suspect]
     Active Substance: BEVACIZUMAB
     Dosage: 250 MG, 1X/DAY
     Route: 041
     Dates: start: 20190109, end: 20190109
  11. PARIET [Concomitant]
     Active Substance: RABEPRAZOLE SODIUM
     Dosage: UNK

REACTIONS (1)
  - Interstitial lung disease [Recovering/Resolving]

NARRATIVE: CASE EVENT DATE: 20190115
